FAERS Safety Report 8239308-0 (Version None)
Quarter: 2012Q1

REPORT INFORMATION
  Report Type: 
  Country: None (occurrence: None)
  Receive Date: 20120328
  Receipt Date: 20120320
  Transmission Date: 20120608
  Serious: Yes (Hospitalization)
  Sender: FDA-Public Use
  Company Number: NL-AMGEN-NLDCT2012018841

PATIENT
  Age: 66 Year
  Sex: Female
  Weight: 73 kg

DRUGS (6)
  1. PREDNISOLONE [Concomitant]
     Indication: B-CELL LYMPHOMA
     Dosage: 100 MG, UNK
     Route: 048
  2. DOXORUBICIN HCL [Concomitant]
     Indication: B-CELL LYMPHOMA
     Dosage: 50 MG/KG, UNK
  3. FILGRASTIM [Suspect]
     Indication: B-CELL LYMPHOMA
     Dosage: UNK MG, UNK
  4. CYCLOPHOSPHAMIDE [Concomitant]
     Indication: B-CELL LYMPHOMA
     Dosage: 750 MG/M2, UNK
     Route: 042
  5. VINCRISTINE [Concomitant]
     Indication: B-CELL LYMPHOMA
     Dosage: 1.4 MG/M2, UNK
     Route: 042
  6. RITUXIMAB [Concomitant]
     Indication: B-CELL LYMPHOMA
     Dosage: 700 MG, UNK
     Route: 042
     Dates: start: 20120117

REACTIONS (1)
  - ATRIAL FIBRILLATION [None]
